FAERS Safety Report 10626483 (Version 2)
Quarter: 2014Q4

REPORT INFORMATION
  Report Type: Spontaneous
  Country: SE (occurrence: SE)
  Receive Date: 20141204
  Receipt Date: 20141208
  Transmission Date: 20150529
  Serious: Yes (Disabling)
  Sender: FDA-Public Use
  Company Number: SE-TEVA-526644ISR

PATIENT
  Age: 62 Year
  Sex: Male

DRUGS (1)
  1. SIMVASTATIN TEVA [Suspect]
     Active Substance: SIMVASTATIN
     Route: 048

REACTIONS (5)
  - Erectile dysfunction [Unknown]
  - Muscle spasms [Unknown]
  - Fatigue [Unknown]
  - Balance disorder [Unknown]
  - Memory impairment [Unknown]
